FAERS Safety Report 6424386-1 (Version None)
Quarter: 2009Q4

REPORT INFORMATION
  Report Type: 
  Country: None (occurrence: None)
  Receive Date: 20091103
  Receipt Date: 20091030
  Transmission Date: 20100525
  Serious: Yes (Death)
  Sender: FDA-Public Use
  Company Number: US-JNJFOC-20091100480

PATIENT
  Age: 86 Year
  Sex: Male

DRUGS (2)
  1. LEVAQUIN [Suspect]
     Indication: ATYPICAL MYCOBACTERIAL INFECTION
     Route: 065
  2. BIAXIN [Suspect]
     Indication: DRUG USE FOR UNKNOWN INDICATION
     Route: 065
     Dates: start: 20090601

REACTIONS (2)
  - ATRIAL FIBRILLATION [None]
  - VENTRICULAR FIBRILLATION [None]
